FAERS Safety Report 8701751 (Version 3)
Quarter: 2013Q4

REPORT INFORMATION
  Report Type: Spontaneous
  Country: US (occurrence: US)
  Receive Date: 20120803
  Receipt Date: 20131101
  Transmission Date: 20140711
  Serious: No
  Sender: FDA-Public Use
  Company Number: US-009507513-1207USA010824

PATIENT
  Age: 69 Year
  Sex: Male

DRUGS (2)
  1. INVANZ [Suspect]
     Indication: OSTEOMYELITIS
     Dosage: 1 G, QD
     Route: 042
     Dates: start: 20120701
  2. VANCOMYCIN [Concomitant]
     Dosage: 1.75 G, BID
     Route: 042
     Dates: start: 20120701

REACTIONS (1)
  - Inappropriate schedule of drug administration [Unknown]
